FAERS Safety Report 13110629 (Version 3)
Quarter: 2017Q3

REPORT INFORMATION
  Report Type: Spontaneous
  Country: US (occurrence: US)
  Receive Date: 20170112
  Receipt Date: 20170704
  Transmission Date: 20171127
  Serious: Yes (Hospitalization)
  Sender: FDA-Public Use
  Company Number: US-JNJFOC-20170109517

PATIENT
  Sex: Female
  Weight: 85.71 kg

DRUGS (6)
  1. XARELTO [Suspect]
     Active Substance: RIVAROXABAN
     Indication: PRODUCT USED FOR UNKNOWN INDICATION
     Route: 048
  2. ADEMPAS [Suspect]
     Active Substance: RIOCIGUAT
     Indication: PULMONARY HYPERTENSION
     Route: 048
  3. ADEMPAS [Suspect]
     Active Substance: RIOCIGUAT
     Indication: PULMONARY HYPERTENSION
     Route: 048
  4. ADEMPAS [Suspect]
     Active Substance: RIOCIGUAT
     Indication: PULMONARY HYPERTENSION
     Route: 048
     Dates: start: 20161121
  5. ADEMPAS [Suspect]
     Active Substance: RIOCIGUAT
     Indication: PULMONARY HYPERTENSION
     Route: 048
  6. LETAIRIS [Concomitant]
     Active Substance: AMBRISENTAN
     Route: 065

REACTIONS (9)
  - Dyspnoea [Unknown]
  - Oedema peripheral [Unknown]
  - Musculoskeletal stiffness [Unknown]
  - Anaemia [Unknown]
  - Cough [Unknown]
  - Fatigue [Unknown]
  - Musculoskeletal pain [Unknown]
  - Nausea [Unknown]
  - Dyspnoea exertional [Unknown]
